FAERS Safety Report 8800590 (Version 1)
Quarter: 2012Q4

REPORT INFORMATION
  Report Type: 
  Country: JP (occurrence: JP)
  Receive Date: 20120921
  Receipt Date: 20120921
  Transmission Date: 20130627
  Serious: Yes (Hospitalization)
  Sender: FDA-Public Use
  Company Number: JP-GE HEALTHCARE MEDICAL DIAGNOSTICS-OMPQ-NO-1102S-0244

PATIENT
  Age: 74 Year
  Sex: Male
  Weight: 54 kg

DRUGS (7)
  1. OMNIPAQUE [Suspect]
     Indication: CORONARY ARTERY STENOSIS
     Route: 042
     Dates: start: 20110218, end: 20110218
  2. OMNIPAQUE [Suspect]
     Indication: CORONARY ARTERY STENOSIS
     Route: 042
     Dates: start: 20110207, end: 20110207
  3. PRASUGREL [Suspect]
     Indication: ACUTE CORONARY SYNDROME
     Route: 048
     Dates: start: 20110207, end: 20110221
  4. FLUVASTATIN SODIUM [Concomitant]
  5. NICORANDIL [Concomitant]
  6. ACETYLSALICYLIC ACID [Concomitant]
  7. OMEPRAZOLE [Concomitant]

REACTIONS (5)
  - Toxic skin eruption [Recovered/Resolved]
  - Pruritus [Recovered/Resolved]
  - Rash [Recovered/Resolved]
  - Drug eruption [Recovered/Resolved]
  - Erythema [Recovered/Resolved]
